FAERS Safety Report 15785597 (Version 1)
Quarter: 2019Q1

REPORT INFORMATION
  Report Type: Spontaneous
  Country: US (occurrence: US)
  Receive Date: 20190102
  Receipt Date: 20190102
  Transmission Date: 20190417
  Serious: Yes (Hospitalization)
  Sender: FDA-Public Use
  Company Number: None

PATIENT
  Age: 65 Year
  Sex: Female
  Weight: 56.7 kg

DRUGS (8)
  1. VITAMIN B13 [Concomitant]
  2. LOSARTAN. [Suspect]
     Active Substance: LOSARTAN
     Indication: MYOCARDIAL INFARCTION
     Dosage: ?          QUANTITY:30 TABLET(S);?
     Route: 048
     Dates: start: 20180205, end: 20181230
  3. RANITIDINE. [Concomitant]
     Active Substance: RANITIDINE
  4. HYDROSIMINE [Concomitant]
  5. NUBEPENTON [Concomitant]
  6. OIL OF OREGANO [Concomitant]
  7. CARVIDOL [Concomitant]
  8. GABAPENTIN. [Concomitant]
     Active Substance: GABAPENTIN

REACTIONS (4)
  - Dizziness [None]
  - Malaise [None]
  - Impaired work ability [None]
  - Vomiting [None]

NARRATIVE: CASE EVENT DATE: 20180901
